FAERS Safety Report 25014867 (Version 2)
Quarter: 2025Q2

REPORT INFORMATION
  Report Type: Report from Study
  Country: DE (occurrence: DE)
  Receive Date: 20250226
  Receipt Date: 20250609
  Transmission Date: 20250717
  Serious: Yes (Hospitalization)
  Sender: SANDOZ
  Company Number: DE-002147023-NVSC2021DE139005

PATIENT
  Sex: Female

DRUGS (37)
  1. CELECOXIB [Suspect]
     Active Substance: CELECOXIB
     Route: 065
     Dates: start: 20160101
  2. CELECOXIB [Suspect]
     Active Substance: CELECOXIB
     Route: 065
     Dates: start: 20160101
  3. CELECOXIB [Suspect]
     Active Substance: CELECOXIB
     Route: 065
     Dates: start: 20160101
  4. CELECOXIB [Suspect]
     Active Substance: CELECOXIB
     Route: 065
     Dates: start: 20160101, end: 20201126
  5. CELECOXIB [Suspect]
     Active Substance: CELECOXIB
     Route: 065
     Dates: start: 20160101
  6. CELECOXIB [Suspect]
     Active Substance: CELECOXIB
     Route: 065
     Dates: start: 20160101
  7. CELECOXIB [Suspect]
     Active Substance: CELECOXIB
     Route: 065
     Dates: start: 20160101
  8. CELECOXIB [Suspect]
     Active Substance: CELECOXIB
     Route: 065
     Dates: start: 20210811
  9. CELECOXIB [Suspect]
     Active Substance: CELECOXIB
     Route: 065
     Dates: start: 20210811
  10. CELECOXIB [Suspect]
     Active Substance: CELECOXIB
     Route: 065
     Dates: start: 20210811
  11. CELECOXIB [Suspect]
     Active Substance: CELECOXIB
     Route: 065
     Dates: start: 20210811
  12. CELECOXIB [Suspect]
     Active Substance: CELECOXIB
     Route: 065
     Dates: start: 20210811
  13. CELECOXIB [Suspect]
     Active Substance: CELECOXIB
     Route: 065
     Dates: start: 20210811
  14. CELECOXIB [Suspect]
     Active Substance: CELECOXIB
     Route: 065
     Dates: start: 20210811
  15. CELECOXIB [Suspect]
     Active Substance: CELECOXIB
     Indication: Product used for unknown indication
     Route: 065
     Dates: start: 20210811
  16. ETANERCEPT [Suspect]
     Active Substance: ETANERCEPT
     Indication: Product used for unknown indication
     Dosage: 50MG 1X/WEEK
     Route: 065
     Dates: start: 20180222
  17. ETANERCEPT [Suspect]
     Active Substance: ETANERCEPT
     Route: 065
     Dates: start: 20180222
  18. ETANERCEPT [Suspect]
     Active Substance: ETANERCEPT
     Route: 065
     Dates: start: 20180222
  19. ETANERCEPT [Suspect]
     Active Substance: ETANERCEPT
     Route: 065
     Dates: start: 20180222
  20. ETANERCEPT [Suspect]
     Active Substance: ETANERCEPT
     Route: 065
     Dates: start: 20180222
  21. ETANERCEPT [Suspect]
     Active Substance: ETANERCEPT
     Route: 065
     Dates: start: 20180222
  22. ETANERCEPT [Suspect]
     Active Substance: ETANERCEPT
     Route: 065
     Dates: start: 20180222
  23. ETANERCEPT [Suspect]
     Active Substance: ETANERCEPT
     Route: 065
     Dates: start: 20180222
  24. ETANERCEPT [Suspect]
     Active Substance: ETANERCEPT
     Route: 065
     Dates: start: 20180222
  25. ETANERCEPT [Suspect]
     Active Substance: ETANERCEPT
     Route: 065
     Dates: start: 20180222
  26. ENBREL [Suspect]
     Active Substance: ETANERCEPT
     Indication: Product used for unknown indication
     Route: 065
     Dates: start: 20180215
  27. ENBREL [Suspect]
     Active Substance: ETANERCEPT
     Route: 065
     Dates: start: 20180215, end: 20180215
  28. ENBREL [Suspect]
     Active Substance: ETANERCEPT
     Route: 065
     Dates: start: 20180215
  29. ENBREL [Suspect]
     Active Substance: ETANERCEPT
     Route: 065
     Dates: start: 20180222
  30. ENBREL [Suspect]
     Active Substance: ETANERCEPT
     Route: 065
     Dates: start: 20180222
  31. ENBREL [Suspect]
     Active Substance: ETANERCEPT
     Route: 065
     Dates: start: 20180222
  32. IBUPROFEN [Suspect]
     Active Substance: IBUPROFEN
     Indication: Product used for unknown indication
     Route: 065
     Dates: start: 20201127
  33. IBUPROFEN [Suspect]
     Active Substance: IBUPROFEN
     Route: 065
     Dates: start: 20201127, end: 20210810
  34. ETANERCEPT [Suspect]
     Active Substance: ETANERCEPT
     Indication: Product used for unknown indication
     Route: 065
  35. LEVOTHYROXINE [Concomitant]
     Active Substance: LEVOTHYROXINE
     Indication: Product used for unknown indication
     Route: 065
  36. BUDESONIDE [Concomitant]
     Active Substance: BUDESONIDE
     Indication: Product used for unknown indication
     Route: 065
  37. ALBUTEROL [Concomitant]
     Active Substance: ALBUTEROL
     Indication: Product used for unknown indication
     Route: 065

REACTIONS (2)
  - Chronic idiopathic pain syndrome [Unknown]
  - Dry eye [Unknown]

NARRATIVE: CASE EVENT DATE: 20240718
